FAERS Safety Report 5878019-3 (Version None)
Quarter: 2008Q3

REPORT INFORMATION
  Report Type: 
  Country: None (occurrence: None)
  Receive Date: 20080909
  Receipt Date: 20080909
  Transmission Date: 20090109
  Serious: Yes (Hospitalization)
  Sender: FDA-Public Use
  Company Number: None

PATIENT
  Age: 63 Year
  Sex: Male
  Weight: 83.9154 kg

DRUGS (1)
  1. BYETTA [Suspect]
     Indication: DIABETES MELLITUS

REACTIONS (2)
  - CHOLECYSTECTOMY [None]
  - PANCREATITIS [None]
